FAERS Safety Report 8889358 (Version 1)
Quarter: 2012Q4

REPORT INFORMATION
  Report Type: Spontaneous
  Country: US (occurrence: None)
  Receive Date: 20121102
  Receipt Date: 20121102
  Transmission Date: 20130627
  Serious: No
  Sender: FDA-Public Use
  Company Number: None

PATIENT
  Age: 68 Year
  Sex: Female
  Weight: 98.88 kg

DRUGS (1)
  1. EFFIENT 10 MG ELI LILLY + CO [Suspect]
     Indication: STENT PLACEMENT
     Dosage: 1 tablet daily Endotracheal
     Route: 007
     Dates: start: 20120405, end: 20121031

REACTIONS (4)
  - Hair growth abnormal [None]
  - Hair colour changes [None]
  - Ageusia [None]
  - Dysgeusia [None]
